FAERS Safety Report 15730097 (Version 1)
Quarter: 2018Q4

REPORT INFORMATION
  Report Type: Spontaneous
  Country: US (occurrence: US)
  Receive Date: 20181217
  Receipt Date: 20181217
  Transmission Date: 20190205
  Serious: Yes (Other)
  Sender: FDA-Public Use
  Company Number: US-SA-2017SA253419

PATIENT
  Age: 74 Year
  Sex: Female
  Weight: 61.2 kg

DRUGS (8)
  1. ANASTROZOLE. [Concomitant]
     Active Substance: ANASTROZOLE
  2. TAXOTERE [Suspect]
     Active Substance: DOCETAXEL
     Indication: BREAST CANCER FEMALE
     Dosage: 143 MG, Q3W
     Route: 042
     Dates: start: 20111130, end: 20111130
  3. CALCIUM CARBONATE. [Concomitant]
     Active Substance: CALCIUM CARBONATE
  4. NEOSAR [Concomitant]
     Active Substance: CYCLOPHOSPHAMIDE
     Dosage: UNK
  5. AMLODIPINE [Concomitant]
     Active Substance: AMLODIPINE BESYLATE
  6. HYDROCHLOROTHIAZIDE. [Concomitant]
     Active Substance: HYDROCHLOROTHIAZIDE
     Dosage: UNK
  7. POTASSIUM CHLORIDE. [Concomitant]
     Active Substance: POTASSIUM CHLORIDE
     Dosage: UNK
  8. TAXOTERE [Suspect]
     Active Substance: DOCETAXEL
     Dosage: 143 MG, Q3W
     Dates: start: 20120130, end: 20120130

REACTIONS (5)
  - Pain [Unknown]
  - Impaired quality of life [Unknown]
  - Anxiety [Unknown]
  - Emotional distress [Unknown]
  - Alopecia [Recovering/Resolving]

NARRATIVE: CASE EVENT DATE: 20120130
